FAERS Safety Report 5347088-1 (Version None)
Quarter: 2007Q2

REPORT INFORMATION
  Report Type: 
  Country: None (occurrence: None)
  Receive Date: 20070604
  Receipt Date: 20070518
  Transmission Date: 20071010
  Serious: Yes (Hospitalization)
  Sender: FDA-Public Use
  Company Number: 2007-02448

PATIENT
  Age: 53 Year
  Sex: Male

DRUGS (15)
  1. DIAZEPAM [Suspect]
     Indication: MANIA
     Dosage: 1 TAB/D X 7 DAY REGIMEN/ MO, ORAL
     Route: 048
     Dates: start: 20060914, end: 20061201
  2. DIAZEPAM [Suspect]
     Indication: MANIA
     Dosage: 1 TAB/D X 7 DAY REGIMEN/ MO, ORAL
     Route: 048
     Dates: start: 20070413, end: 20070503
  3. DIAZEPAM [Suspect]
     Indication: MANIA
     Dosage: 1 TAB/D X 21 DAY REGIMEN/MO, ORAL
     Route: 048
     Dates: start: 20070413, end: 20070503
  4. DIAZEPAM [Suspect]
     Indication: MANIA
     Dosage: 1 TAB/D X 7 ADDITIONAL DAYS, ORAL
     Route: 048
     Dates: start: 20070328, end: 20070403
  5. DIAZEPAM [Suspect]
     Indication: MANIA
     Dosage: 1 TAB/D X 14 DAYS REGIMEN/MO, ORAL
     Route: 048
     Dates: start: 20061201, end: 20070327
  6. COGENTIN [Concomitant]
  7. DDAVP [Concomitant]
  8. DEPAKOTE [Concomitant]
  9. COLACE [Concomitant]
  10. FLOVENT [Concomitant]
  11. LASIX [Concomitant]
  12. LAMICTAL [Concomitant]
  13. M.V.I. (ERGOCALCIFEROL, TOCOPHEROL, RETINOL, DEXPANTHENOL, RIBOFLAVIN, [Concomitant]
  14. ZYPREXA [Concomitant]
  15. TEGRETOL [Concomitant]

REACTIONS (13)
  - AGGRESSION [None]
  - AGITATION [None]
  - CONDITION AGGRAVATED [None]
  - DRUG INEFFECTIVE [None]
  - DRUG INEFFECTIVE FOR UNAPPROVED INDICATION [None]
  - HOMICIDAL IDEATION [None]
  - INSOMNIA [None]
  - IRRITABILITY [None]
  - LABORATORY TEST ABNORMAL [None]
  - MANIA [None]
  - MEDICATION ERROR [None]
  - PSYCHOTIC DISORDER [None]
  - RESTLESSNESS [None]
